FAERS Safety Report 7450761-2 (Version None)
Quarter: 2011Q2

REPORT INFORMATION
  Report Type: 
  Country: None (occurrence: None)
  Receive Date: 20110502
  Receipt Date: 20110422
  Transmission Date: 20111010
  Serious: Yes (Hospitalization, Other)
  Sender: FDA-Public Use
  Company Number: US-ELI_LILLY_AND_COMPANY-US201103001558

PATIENT
  Sex: Female

DRUGS (11)
  1. BONIVA [Concomitant]
  2. LAXIT [Concomitant]
  3. ADCIRCA [Suspect]
     Indication: PULMONARY ARTERIAL HYPERTENSION
     Dosage: 40 MG, QD
     Route: 048
     Dates: start: 20101001
  4. PLAVIX [Concomitant]
  5. METOPROLOL SUCCINATE [Concomitant]
  6. NEXIUM [Concomitant]
  7. LIPITOR [Concomitant]
  8. ASPIRIN [Concomitant]
  9. LYRICA [Concomitant]
  10. GINGER [Concomitant]
  11. COUMADIN [Concomitant]

REACTIONS (7)
  - FEMORAL ARTERY OCCLUSION [None]
  - PERIPHERAL VASCULAR DISORDER [None]
  - URINARY TRACT INFECTION [None]
  - CARDIAC FAILURE CONGESTIVE [None]
  - INFECTION [None]
  - SKIN ULCER [None]
  - OSTEOMYELITIS [None]
